FAERS Safety Report 9836615 (Version 1)
Quarter: 2013Q4

REPORT INFORMATION
  Report Type: Spontaneous
  Country: US (occurrence: None)
  Receive Date: 20131120
  Receipt Date: 20131120
  Transmission Date: 20140711
  Serious: Yes (Other)
  Sender: FDA-Public Use
  Company Number: 1000049586

PATIENT
  Age: 32 Year
  Sex: Female

DRUGS (1)
  1. VIIBRYD [Suspect]
     Dosage: 40MG (40MG, 1 IN 1 D) ORAL
     Route: 048
     Dates: start: 2013, end: 2013

REACTIONS (4)
  - Paraesthesia [None]
  - Fear of death [None]
  - Tinnitus [None]
  - Dreamy state [None]
